FAERS Safety Report 8511803-6 (Version None)
Quarter: 2012Q3

REPORT INFORMATION
  Report Type: 
  Country: None (occurrence: None)
  Receive Date: 20120716
  Receipt Date: 20120711
  Transmission Date: 20120928
  Serious: Yes (Other)
  Sender: FDA-Public Use
  Company Number: IT-PFIZER INC-2012168840

PATIENT

DRUGS (4)
  1. SUTENT [Suspect]
     Indication: RENAL CELL CARCINOMA
     Dosage: 50 MG, 1X/DAY
     Route: 048
     Dates: start: 20080519
  2. RABEPRAZOLE SODIUM [Concomitant]
     Dosage: 20 MG, UNK
     Dates: start: 20080630
  3. LOSAZID [Concomitant]
     Dosage: 50 MG, UNK
     Route: 048
     Dates: start: 20080519
  4. ASPIRIN [Concomitant]
     Dosage: 150 MG, UNK
     Dates: start: 20080519

REACTIONS (1)
  - HYPERTENSIVE CRISIS [None]
